FAERS Safety Report 10922404 (Version 1)
Quarter: 2015Q1

REPORT INFORMATION
  Report Type: Spontaneous
  Country: GB (occurrence: GB)
  Receive Date: 20150317
  Receipt Date: 20150317
  Transmission Date: 20150721
  Serious: Yes (Death, Hospitalization, Other)
  Sender: FDA-Public Use
  Company Number: GB-BANPHARM-20153645

PATIENT
  Age: 31 Year
  Sex: Female

DRUGS (5)
  1. ZOPICLONE [Suspect]
     Active Substance: ZOPICLONE
     Indication: ABDOMINAL PAIN
  2. OXYCODONE [Concomitant]
     Active Substance: OXYCODONE
     Indication: EAR PAIN
  3. PARACETAMOL [Suspect]
     Active Substance: ACETAMINOPHEN
     Indication: EAR PAIN
     Dosage: 2 DF, Q 30 MIN
     Dates: start: 201410
  4. ZOPICLONE [Suspect]
     Active Substance: ZOPICLONE
     Indication: SLEEP DISORDER
  5. IBUPROFEN UNKNOWN PRODUCT [Suspect]
     Active Substance: IBUPROFEN
     Indication: EAR PAIN
     Dosage: DOUBLE DOSE

REACTIONS (3)
  - Lung disorder [Fatal]
  - Hepatic congestion [Not Recovered/Not Resolved]
  - Overdose [Fatal]
